FAERS Safety Report 4962508-X (Version None)
Quarter: 2006Q1

REPORT INFORMATION
  Report Type: 
  Country: None (occurrence: None)
  Receive Date: 20060127
  Receipt Date: 20050311
  Transmission Date: 20060701
  Serious: Yes (Death)
  Sender: FDA-Public Use
  Company Number: 05-03-0384

PATIENT
  Age: 75 Year
  Sex: Female

DRUGS (2)
  1. CLOZAPINE [Suspect]
     Indication: BIPOLAR DISORDER
     Dosage: 200 MG QD; ORAL
     Route: 048
     Dates: start: 20041201, end: 20050101
  2. CLOZAPINE [Suspect]
     Indication: DEMENTIA
     Dosage: 200 MG QD; ORAL
     Route: 048
     Dates: start: 20041201, end: 20050101

REACTIONS (1)
  - NO ADVERSE DRUG EFFECT [None]
